FAERS Safety Report 10872417 (Version 2)
Quarter: 2015Q1

REPORT INFORMATION
  Report Type: Spontaneous
  Country: CA (occurrence: CA)
  Receive Date: 20150226
  Receipt Date: 20150304
  Transmission Date: 20150721
  Serious: Yes (Other)
  Sender: FDA-Public Use
  Company Number: CA-009507513-1502CAN010623

PATIENT
  Age: 54 Year
  Sex: Female

DRUGS (1)
  1. POSANOL [Suspect]
     Active Substance: POSACONAZOLE
     Indication: NON-HODGKIN^S LYMPHOMA
     Dosage: 40 MG/5 ML THREE TIMES DAILY
     Route: 048
     Dates: start: 201409

REACTIONS (3)
  - Transplant [Unknown]
  - Transplant rejection [Unknown]
  - Immune system disorder [Unknown]

NARRATIVE: CASE EVENT DATE: 201409
